FAERS Safety Report 13277342 (Version 1)
Quarter: 2017Q1

REPORT INFORMATION
  Report Type: Spontaneous
  Country: FR (occurrence: FR)
  Receive Date: 20170228
  Receipt Date: 20170228
  Transmission Date: 20170428
  Serious: Yes (Other)
  Sender: FDA-Public Use
  Company Number: FR-PFIZER INC-2017080084

PATIENT
  Age: 73 Year
  Sex: Female

DRUGS (1)
  1. AROMASINE [Suspect]
     Active Substance: EXEMESTANE
     Indication: BREAST CANCER METASTATIC
     Dosage: UNK, DAILY
     Dates: start: 201109, end: 20170215

REACTIONS (15)
  - Regurgitation [Recovering/Resolving]
  - Feeling drunk [Recovering/Resolving]
  - Fall [Recovering/Resolving]
  - Coma [Recovering/Resolving]
  - Epilepsy [Recovering/Resolving]
  - Loss of consciousness [Recovering/Resolving]
  - Malaise [Recovering/Resolving]
  - Brain compression [Unknown]
  - Ear discomfort [Unknown]
  - Musculoskeletal stiffness [Recovering/Resolving]
  - Hypertension [Unknown]
  - Muscle contracture [Recovering/Resolving]
  - Pain [Recovering/Resolving]
  - Muscular weakness [Recovering/Resolving]
  - Vomiting [Recovering/Resolving]

NARRATIVE: CASE EVENT DATE: 2016
